FAERS Safety Report 5823766-2 (Version None)
Quarter: 2008Q3

REPORT INFORMATION
  Report Type: 
  Country: None (occurrence: None)
  Receive Date: 20080725
  Receipt Date: 20080716
  Transmission Date: 20090109
  Serious: Yes (Other)
  Sender: FDA-Public Use
  Company Number: JP-PFIZER INC-2008059731

PATIENT
  Age: 35 Year

DRUGS (7)
  1. ALPRAZOLAM [Suspect]
     Route: 048
  2. FLUVOXAMINE MALEATE [Suspect]
     Indication: DEPRESSION
     Dosage: DAILY DOSE:150MG
     Route: 048
  3. MAPROTILINE HYDROCHLORIDE [Concomitant]
     Route: 048
  4. ETIZOLAM [Concomitant]
     Route: 048
  5. MIANSERIN HYDROCHLORIDE [Concomitant]
     Route: 048
  6. TRIAZOLAM [Concomitant]
     Route: 048
  7. ATORVASTATIN CALCIUM [Concomitant]
     Route: 048

REACTIONS (1)
  - ALTERED STATE OF CONSCIOUSNESS [None]
